FAERS Safety Report 16444799 (Version 2)
Quarter: 2019Q3

REPORT INFORMATION
  Report Type: Spontaneous
  Country: JP (occurrence: JP)
  Receive Date: 20190618
  Receipt Date: 20190710
  Transmission Date: 20191004
  Serious: Yes (Hospitalization, Other)
  Sender: FDA-Public Use
  Company Number: JP-SAKK-2019SA159956AA

PATIENT
  Age: 64 Year
  Sex: Male

DRUGS (2)
  1. DOCETAXEL. [Suspect]
     Active Substance: DOCETAXEL
     Indication: LUNG ADENOCARCINOMA
     Dosage: UNK
     Route: 041
  2. DOCETAXEL. [Suspect]
     Active Substance: DOCETAXEL
     Dosage: ADMINISTRATION RESUMED
     Route: 041

REACTIONS (2)
  - Pneumothorax [Recovered/Resolved]
  - Pneumothorax [Recovering/Resolving]
